FAERS Safety Report 15361824 (Version 1)
Quarter: 2018Q3

REPORT INFORMATION
  Report Type: Spontaneous
  Country: US (occurrence: US)
  Receive Date: 20180831
  Receipt Date: 20180831
  Transmission Date: 20181010
  Serious: No
  Sender: FDA-Public Use
  Company Number: None

PATIENT
  Age: 67 Year
  Sex: Female
  Weight: 74.84 kg

DRUGS (10)
  1. SYNTHROID [Concomitant]
     Active Substance: LEVOTHYROXINE SODIUM
  2. VITAMIN B COMPLEX [Concomitant]
     Active Substance: CYANOCOBALAMIN\DEXPANTHENOL\NIACINAMIDE\PYRIDOXINE HYDROCHLORIDE\RIBOFLAVIN 5^-PHOSPHATE SODIUM\THIAMINE HYDROCHLORIDE\VITAMIN B COMPLEX
  3. MULTI VITAMIN [Concomitant]
     Active Substance: VITAMINS
  4. BUSPIRON [Concomitant]
     Active Substance: BUSPIRONE HYDROCHLORIDE
  5. XARELTO [Suspect]
     Active Substance: RIVAROXABAN
     Indication: ATRIAL FIBRILLATION
     Route: 048
  6. CALCIUM [Concomitant]
     Active Substance: CALCIUM
  7. VITAMIN D3 [Concomitant]
     Active Substance: CHOLECALCIFEROL
  8. TUMERIC [Concomitant]
     Active Substance: HERBALS\TURMERIC
  9. LUTEIN [Concomitant]
     Active Substance: LUTEIN
  10. FISH OIL [Concomitant]
     Active Substance: FISH OIL

REACTIONS (5)
  - Fatigue [None]
  - Arthralgia [None]
  - Muscle spasms [None]
  - Mobility decreased [None]
  - Gastrooesophageal reflux disease [None]

NARRATIVE: CASE EVENT DATE: 20180817
